FAERS Safety Report 7553023-8 (Version None)
Quarter: 2011Q2

REPORT INFORMATION
  Report Type: 
  Country: None (occurrence: None)
  Receive Date: 20110616
  Receipt Date: 20110613
  Transmission Date: 20111010
  Serious: Yes (Death)
  Sender: FDA-Public Use
  Company Number: US-CELGENEUS-163-21880-11051552

PATIENT
  Sex: Male

DRUGS (19)
  1. ALLOPURINOL [Concomitant]
     Route: 065
  2. CO Q 10 [Concomitant]
     Route: 065
  3. ELIGARD [Concomitant]
     Route: 065
  4. TOPROL-XL [Concomitant]
     Route: 065
  5. UROXATRAL [Concomitant]
     Route: 065
  6. ARANESP [Concomitant]
     Route: 065
  7. CASODEX [Concomitant]
     Route: 065
  8. COSOPT [Concomitant]
     Route: 065
  9. LOVAZA [Concomitant]
     Route: 065
  10. TRAVATAN [Concomitant]
     Route: 065
  11. ZOCOR [Concomitant]
     Route: 065
  12. FOLIC ACID [Concomitant]
     Route: 065
  13. MULTI-VITAMINS [Concomitant]
     Route: 065
  14. PANTOPRAZOLE [Concomitant]
     Route: 065
  15. REVLIMID [Suspect]
     Indication: MYELODYSPLASTIC SYNDROME
     Dosage: 25 MILLIGRAM
     Route: 048
     Dates: start: 20100525, end: 20110201
  16. VITAMIN B6 [Concomitant]
     Route: 065
  17. ALPHAGAN [Concomitant]
     Route: 065
  18. COUMADIN [Concomitant]
     Route: 065
  19. ESTER-C/BIOF [Concomitant]
     Route: 065

REACTIONS (2)
  - BONE MARROW FAILURE [None]
  - MYELODYSPLASTIC SYNDROME [None]
